FAERS Safety Report 20873464 (Version 1)
Quarter: 2022Q2

REPORT INFORMATION
  Report Type: Spontaneous
  Country: US (occurrence: US)
  Receive Date: 20220525
  Receipt Date: 20220525
  Transmission Date: 20220721
  Serious: Yes (Hospitalization, Other)
  Sender: FDA-Public Use
  Company Number: US-BRISTOL-MYERS SQUIBB COMPANY-2022-040138

PATIENT
  Age: 79 Year
  Sex: Male

DRUGS (1)
  1. POMALYST [Suspect]
     Active Substance: POMALIDOMIDE
     Indication: Product used for unknown indication
     Dosage: EVERY DAY 7 DAYS FOLLOWED BY 7 DAYS OFF REPEAT CYCLE
     Route: 048
     Dates: start: 20191228

REACTIONS (6)
  - Kidney infection [Recovering/Resolving]
  - Nephrolithiasis [Recovering/Resolving]
  - Haemoglobin decreased [Not Recovered/Not Resolved]
  - Diarrhoea [Not Recovered/Not Resolved]
  - Faeces discoloured [Not Recovered/Not Resolved]
  - Off label use [Unknown]
